FAERS Safety Report 9842079 (Version 2)
Quarter: 2014Q1

REPORT INFORMATION
  Report Type: Spontaneous
  Country: JP (occurrence: JP)
  Receive Date: 20140124
  Receipt Date: 20140131
  Transmission Date: 20141002
  Serious: Yes (Hospitalization)
  Sender: FDA-Public Use
  Company Number: JP-BRISTOL-MYERS SQUIBB COMPANY-20074209

PATIENT
  Age: 80 Year
  Sex: Female

DRUGS (4)
  1. BARACLUDE TABS 0.5 MG [Suspect]
     Indication: CHRONIC HEPATITIS B
     Dosage: ONGOING
     Route: 048
  2. MEDICON [Suspect]
     Route: 048
  3. BAKTAR [Concomitant]
     Route: 048
  4. WARFARIN [Concomitant]
     Route: 048

REACTIONS (3)
  - Alanine aminotransferase increased [Not Recovered/Not Resolved]
  - Foot fracture [Unknown]
  - Aspartate aminotransferase increased [Not Recovered/Not Resolved]
